FAERS Safety Report 25040785 (Version 1)
Quarter: 2025Q1

REPORT INFORMATION
  Report Type: Spontaneous
  Country: CA (occurrence: CA)
  Receive Date: 20250305
  Receipt Date: 20250305
  Transmission Date: 20250409
  Serious: Yes (Hospitalization)
  Sender: ROCHE
  Company Number: CA-002147023-NVSC2025CA034084

PATIENT
  Age: 62 Year
  Sex: Female

DRUGS (3)
  1. OMALIZUMAB [Suspect]
     Active Substance: OMALIZUMAB
     Indication: Asthma
     Route: 065
  2. OMALIZUMAB [Suspect]
     Active Substance: OMALIZUMAB
     Route: 065
  3. OMALIZUMAB [Suspect]
     Active Substance: OMALIZUMAB
     Route: 065

REACTIONS (5)
  - Pulmonary mass [Unknown]
  - Pneumonia [Unknown]
  - Wheezing [Unknown]
  - Infection [Unknown]
  - Drug effect less than expected [Unknown]
